FAERS Safety Report 9199749 (Version 5)
Quarter: 2013Q3

REPORT INFORMATION
  Report Type: Report from Study
  Country: US (occurrence: US)
  Receive Date: 20130329
  Receipt Date: 20130730
  Transmission Date: 20140515
  Serious: Yes (Other)
  Sender: FDA-Public Use
  Company Number: US-JNJFOC-20130313128

PATIENT
  Age: 68 Year
  Sex: Female
  Weight: 68.49 kg

DRUGS (19)
  1. REMICADE [Suspect]
     Indication: CROHN^S DISEASE
     Dosage: 2ND DOSE
     Route: 042
     Dates: start: 20130305
  2. REMICADE [Suspect]
     Indication: CROHN^S DISEASE
     Dosage: 1ST INFUSION (TWICE)
     Route: 042
     Dates: start: 20130219
  3. REMICADE [Suspect]
     Indication: CROHN^S DISEASE
     Route: 042
     Dates: start: 20130402
  4. REMICADE [Suspect]
     Indication: CROHN^S DISEASE
     Route: 042
  5. MODURETIC [Concomitant]
     Indication: FLUID RETENTION
     Dosage: 5/50 MG DAILY IN MORNING
     Route: 048
  6. ZANTAC [Concomitant]
     Indication: GASTROOESOPHAGEAL REFLUX DISEASE
     Route: 048
  7. SPIRIVA [Concomitant]
     Indication: CHRONIC OBSTRUCTIVE PULMONARY DISEASE
     Dosage: 2 PUFFS
     Route: 055
  8. IMDUR [Concomitant]
     Indication: BLOOD PRESSURE
     Dosage: DAILY IN MORNING
     Route: 048
  9. CRESTOR [Concomitant]
     Indication: BLOOD CHOLESTEROL
     Dosage: DAILY AT NIGHT
     Route: 048
  10. VITAMIN D3 [Concomitant]
     Indication: CARDIAC DISORDER
     Dosage: DAILY
     Route: 048
  11. VITAMIN D3 [Concomitant]
     Indication: VITAMIN SUPPLEMENTATION
     Dosage: DAILY
     Route: 048
  12. ENTOCORT EC [Concomitant]
     Indication: CROHN^S DISEASE
     Dosage: DAILY
     Route: 048
     Dates: start: 201211
  13. ASPIRIN [Concomitant]
     Indication: CARDIAC DISORDER
     Dosage: IN MORNING
     Route: 048
     Dates: start: 2007
  14. ASA [Concomitant]
     Indication: CARDIAC DISORDER
     Route: 065
  15. ZYRTEC [Concomitant]
     Route: 065
  16. LIDODERM [Concomitant]
     Indication: BACK PAIN
     Route: 065
  17. LIDODERM [Concomitant]
     Indication: ARTHRALGIA
     Route: 065
  18. AMILORIDE/HYDROCHLOROTHIAZIDE [Concomitant]
     Dosage: 5/50
     Route: 065
  19. METOPROLOL TARTRATE [Concomitant]
     Route: 065

REACTIONS (14)
  - Local swelling [Not Recovered/Not Resolved]
  - Infusion related reaction [Recovering/Resolving]
  - Dyskinesia [Recovering/Resolving]
  - Arthralgia [Recovering/Resolving]
  - Feeling hot [Not Recovered/Not Resolved]
  - Pain [Not Recovered/Not Resolved]
  - Lack of satiety [Not Recovered/Not Resolved]
  - Night sweats [Not Recovered/Not Resolved]
  - Weight increased [Recovering/Resolving]
  - Alopecia [Recovering/Resolving]
  - Contusion [Not Recovered/Not Resolved]
  - Pain in extremity [Not Recovered/Not Resolved]
  - Fatigue [Recovering/Resolving]
  - Asthenia [Not Recovered/Not Resolved]
